FAERS Safety Report 6252815-5 (Version None)
Quarter: 2009Q2

REPORT INFORMATION
  Report Type: 
  Country: None (occurrence: None)
  Receive Date: 20090629
  Receipt Date: 20090615
  Transmission Date: 20091009
  Serious: Yes (Other)
  Sender: FDA-Public Use
  Company Number: DSU-2009-01229

PATIENT
  Age: 47 Year
  Sex: Male
  Weight: 77.1115 kg

DRUGS (2)
  1. BENICAR [Suspect]
     Indication: HYPERTENSION
     Dosage: 40 MG (40 MG, QD), PER ORAL, 40 MG (40 MG, QD), PER ORAL
     Route: 048
     Dates: start: 20060101, end: 20090101
  2. BENICAR [Suspect]
     Indication: HYPERTENSION
     Dosage: 40 MG (40 MG, QD), PER ORAL, 40 MG (40 MG, QD), PER ORAL
     Route: 048
     Dates: start: 20090501

REACTIONS (5)
  - BLOOD PRESSURE INCREASED [None]
  - BRAIN OEDEMA [None]
  - HEADACHE [None]
  - INCORRECT DRUG DOSAGE FORM ADMINISTERED [None]
  - LOSS OF EMPLOYMENT [None]
